FAERS Safety Report 5916835-X (Version None)
Quarter: 2008Q3

REPORT INFORMATION
  Report Type: 
  Country: None (occurrence: None)
  Receive Date: 20080909
  Receipt Date: 20080506
  Transmission Date: 20090109
  Serious: Yes (Other)
  Sender: FDA-Public Use
  Company Number: 163-20785-07120795 (0)

PATIENT
  Age: 86 Year
  Sex: Female
  Weight: 85.2762 kg

DRUGS (3)
  1. THALOMID [Suspect]
     Indication: MULTIPLE MYELOMA
     Dosage: 100 MG, 2 IN 1 D, ORAL ; 150-200MG, DAILY, ORAL
     Route: 048
     Dates: start: 20070723, end: 20071201
  2. THALOMID [Suspect]
     Indication: MULTIPLE MYELOMA
     Dosage: 100 MG, 2 IN 1 D, ORAL ; 150-200MG, DAILY, ORAL
     Route: 048
     Dates: start: 20071201
  3. ASPIRIN [Concomitant]

REACTIONS (4)
  - FATIGUE [None]
  - MEMORY IMPAIRMENT [None]
  - METASTASES TO LUNG [None]
  - PLEURAL EFFUSION [None]
